FAERS Safety Report 5520763-1 (Version None)
Quarter: 2007Q4

REPORT INFORMATION
  Report Type: 
  Country: None (occurrence: None)
  Receive Date: 20071119
  Receipt Date: 20071109
  Transmission Date: 20080405
  Serious: Yes (Hospitalization)
  Sender: FDA-Public Use
  Company Number: US-BAYER-200714489BWH

PATIENT
  Age: 65 Year
  Sex: Male
  Weight: 89 kg

DRUGS (4)
  1. SORAFENIB [Suspect]
     Indication: OESOPHAGEAL CARCINOMA
     Dosage: TOTAL DAILY DOSE: 400 MG  UNIT DOSE: 200 MG
     Route: 048
     Dates: start: 20071017, end: 20071024
  2. CISPLATIN [Suspect]
     Indication: OESOPHAGEAL CARCINOMA
     Dates: start: 20071017, end: 20071017
  3. ETOPOSIDE [Suspect]
     Indication: OESOPHAGEAL CARCINOMA
     Dates: start: 20071017, end: 20071019
  4. ISOSOURCE [Concomitant]
     Dosage: AS USED: 125 ML

REACTIONS (2)
  - DIARRHOEA [None]
  - ELECTROLYTE IMBALANCE [None]
